FAERS Safety Report 15574181 (Version 2)
Quarter: 2018Q4

REPORT INFORMATION
  Report Type: Report from Study
  Country: CN (occurrence: CN)
  Receive Date: 20181101
  Receipt Date: 20181113
  Transmission Date: 20190205
  Serious: Yes (Other)
  Sender: FDA-Public Use
  Company Number: CN-ASTELLAS-2018US046641

PATIENT
  Age: 42 Year
  Sex: Female

DRUGS (1)
  1. ERLOTINIB [Suspect]
     Active Substance: ERLOTINIB
     Indication: NON-SMALL CELL LUNG CANCER
     Route: 048
     Dates: start: 20161206

REACTIONS (4)
  - Blindness unilateral [Unknown]
  - Asthenia [Unknown]
  - Drug resistance [Unknown]
  - Cough [Unknown]

NARRATIVE: CASE EVENT DATE: 20180831
